FAERS Safety Report 9011688 (Version 1)
Quarter: 2013Q1

REPORT INFORMATION
  Report Type: Spontaneous
  Country: US (occurrence: US)
  Receive Date: 20130107
  Receipt Date: 20130107
  Transmission Date: 20140127
  Serious: Yes (Other)
  Sender: FDA-Public Use
  Company Number: US-JNJFOC-20121214319

PATIENT
  Age: 36 Year
  Sex: Female
  Weight: 62.6 kg

DRUGS (1)
  1. REGULAR STRENGTH TYLENOL [Suspect]
     Indication: HEADACHE
     Dosage: 325 MG/TABLET
     Route: 048
     Dates: start: 20121217, end: 20121217

REACTIONS (8)
  - Dyspnoea [Recovered/Resolved]
  - Blood pressure decreased [Unknown]
  - Urticaria [Unknown]
  - Skin tightness [Unknown]
  - Product label issue [Unknown]
  - Product lot number issue [None]
  - Product expiration date issue [None]
  - Product quality issue [None]
